FAERS Safety Report 17754672 (Version 1)
Quarter: 2020Q2

REPORT INFORMATION
  Report Type: Spontaneous
  Country: US (occurrence: US)
  Receive Date: 20200506
  Receipt Date: 20200506
  Transmission Date: 20200714
  Serious: No
  Sender: FDA-Public Use
  Company Number: US-GLENMARK PHARMACEUTICALS-2020GMK047213

PATIENT

DRUGS (4)
  1. ATORVASTATIN [Concomitant]
     Active Substance: ATORVASTATIN
     Indication: PRODUCT USED FOR UNKNOWN INDICATION
     Dosage: UNK
     Route: 065
  2. TACROLIMUS. [Suspect]
     Active Substance: TACROLIMUS
     Indication: PRURITUS
     Dosage: UNK, BID (EVERY 12 HOURS) (ON RECTAL AND URINARY TRACT SKIN AREA)
     Route: 061
     Dates: start: 2020
  3. AMLODIPINE [Concomitant]
     Active Substance: AMLODIPINE BESYLATE
     Indication: PRODUCT USED FOR UNKNOWN INDICATION
     Dosage: UNK
     Route: 065
  4. TRULICITY [Concomitant]
     Active Substance: DULAGLUTIDE
     Indication: HYPERTENSION
     Dosage: UNK, QW (ONCE A WEEK)
     Route: 065

REACTIONS (3)
  - Product administered at inappropriate site [Unknown]
  - Drug ineffective [Unknown]
  - Application site pain [Unknown]

NARRATIVE: CASE EVENT DATE: 2020
